FAERS Safety Report 9049413 (Version 1)
Quarter: 2013Q1

REPORT INFORMATION
  Report Type: Spontaneous
  Country: US (occurrence: US)
  Receive Date: 20130205
  Receipt Date: 20130205
  Transmission Date: 20140127
  Serious: No
  Sender: FDA-Public Use
  Company Number: US-ASTRAZENECA-2013SE07190

PATIENT
  Sex: Female

DRUGS (1)
  1. ZOMIG NASAL SPRAY [Suspect]
     Route: 045

REACTIONS (2)
  - Pharyngeal oedema [Unknown]
  - Dysgeusia [Unknown]
